FAERS Safety Report 8101668-9 (Version None)
Quarter: 2012Q1

REPORT INFORMATION
  Report Type: 
  Country: None (occurrence: None)
  Receive Date: 20120129
  Receipt Date: 20111013
  Transmission Date: 20120608
  Serious: No
  Sender: FDA-Public Use
  Company Number: US-ABBOTT-11P-163-0863438-00

PATIENT
  Sex: Female

DRUGS (7)
  1. ADALAT [Concomitant]
     Indication: HYPERTENSION
  2. CAPTOPRIL [Concomitant]
     Indication: HYPERTENSION
  3. HUMIRA [Suspect]
     Indication: RHEUMATOID ARTHRITIS
     Route: 058
     Dates: start: 20110701, end: 20110901
  4. PLAQUENIL [Concomitant]
     Indication: DEPRESSION
  5. RECLAST [Concomitant]
     Indication: OSTEOPOROSIS
  6. CALCIUM [Concomitant]
     Indication: MINERAL SUPPLEMENTATION
  7. PREDNISONE TAB [Concomitant]
     Indication: RHEUMATOID ARTHRITIS

REACTIONS (3)
  - HYPOAESTHESIA [None]
  - PARAESTHESIA [None]
  - SINUSITIS [None]
